FAERS Safety Report 13928174 (Version 1)
Quarter: 2017Q3

REPORT INFORMATION
  Report Type: Spontaneous
  Country: CA (occurrence: CA)
  Receive Date: 20170901
  Receipt Date: 20170901
  Transmission Date: 20171127
  Serious: Yes (Other)
  Sender: FDA-Public Use
  Company Number: PHHY2017CA125878

PATIENT

DRUGS (1)
  1. COSENTYX [Suspect]
     Active Substance: SECUKINUMAB
     Indication: FOETAL EXPOSURE DURING PREGNANCY
     Dosage: FETAL DRUG EXPOSURE VIA FATHER
     Route: 050

REACTIONS (5)
  - Low birth weight baby [Unknown]
  - Paternal exposure during pregnancy [Unknown]
  - Bradycardia [Unknown]
  - Hypoglycaemia [Unknown]
  - Thrombocytopenia [Unknown]
